FAERS Safety Report 5098909-1 (Version None)
Quarter: 2006Q3

REPORT INFORMATION
  Report Type: 
  Country: None (occurrence: None)
  Receive Date: 20060907
  Receipt Date: 20060823
  Transmission Date: 20061208
  Serious: Yes (Other)
  Sender: FDA-Public Use
  Company Number: PHBS2006AT12712

PATIENT
  Age: 80 Year
  Sex: Male

DRUGS (7)
  1. LESCOL [Suspect]
     Dosage: 80 MG/DAY
     Dates: start: 20050101, end: 20060601
  2. LESCOL [Suspect]
     Dosage: 40 MG/DAY
     Dates: start: 20060601, end: 20060821
  3. CO-DILATREND [Concomitant]
     Dosage: 1 DF/DAY
  4. LASIX [Concomitant]
     Dosage: 60 MG/DAY
  5. PLAVIX [Concomitant]
     Dosage: 1 DF/DAY
  6. ALNA [Concomitant]
     Dosage: 1 DF/DAY
  7. AMLODIPINE [Concomitant]
     Dosage: 10 MG/DAY

REACTIONS (6)
  - ANGIOPLASTY [None]
  - ASTHENIA [None]
  - DRUG INTERACTION [None]
  - MUSCULAR WEAKNESS [None]
  - MYALGIA [None]
  - MYOPATHY [None]
